FAERS Safety Report 16366621 (Version 1)
Quarter: 2019Q3

REPORT INFORMATION
  Report Type: Spontaneous
  Country: US (occurrence: US)
  Receive Date: 20190528
  Receipt Date: 20190528
  Transmission Date: 20191004
  Serious: Yes (Other)
  Sender: FDA-Public Use
  Company Number: None

PATIENT
  Age: 58 Year
  Sex: Female
  Weight: 54 kg

DRUGS (14)
  1. SULFACETAMIDE SODIUM TOPICAL 10% [Suspect]
     Active Substance: SULFACETAMIDE SODIUM
     Indication: ROSACEA
     Route: 061
     Dates: start: 20190412, end: 20190525
  2. IRON [Concomitant]
     Active Substance: IRON
  3. CBD OIL (HEMP) [Concomitant]
  4. PLEXION CLEANSING [Suspect]
     Active Substance: SULFACETAMIDE SODIUM\SULFUR
  5. SOOLANTRA [Concomitant]
     Active Substance: IVERMECTIN
  6. VITAMIN D [Concomitant]
     Active Substance: VITAMIN D NOS
  7. SEBUDERM [Concomitant]
  8. QUERCETIN [Concomitant]
     Active Substance: QUERCETIN
  9. DUOZYME ENZYMES [Concomitant]
  10. VITAMIN B2 [Concomitant]
     Active Substance: RIBOFLAVIN
  11. VARIOUS SUPPLEMENTS [Concomitant]
  12. BORAGE [Concomitant]
  13. ST. JOHN^S WORT [Concomitant]
     Active Substance: ST. JOHN^S WORT
  14. MAGNESIUM [Concomitant]
     Active Substance: MAGNESIUM

REACTIONS (2)
  - Skin lesion [None]
  - Swollen tongue [None]

NARRATIVE: CASE EVENT DATE: 20190525
